FAERS Safety Report 12215502 (Version 1)
Quarter: 2016Q1

REPORT INFORMATION
  Report Type: Spontaneous
  Country: JP (occurrence: JP)
  Receive Date: 20160328
  Receipt Date: 20160328
  Transmission Date: 20160526
  Serious: Yes (Death)
  Sender: FDA-Public Use
  Company Number: JP-TEVA-645572ISR

PATIENT
  Age: 72 Year
  Sex: Male
  Weight: 48 kg

DRUGS (8)
  1. E-FEN BUCCAL [Suspect]
     Active Substance: FENTANYL CITRATE
     Dosage: 50 MICROGRAM DAILY; 50-150 MICROGRAM DAILY
     Route: 002
     Dates: start: 20150706, end: 20150722
  2. FENTOS [Concomitant]
     Active Substance: FENTANYL
     Indication: CANCER PAIN
     Dosage: 1 MILLIGRAM DAILY;
     Route: 062
     Dates: start: 20150515, end: 20150628
  3. E-FEN BUCCAL [Suspect]
     Active Substance: FENTANYL CITRATE
     Dosage: 50 MICROGRAM DAILY;
     Route: 002
     Dates: start: 20150622, end: 20150628
  4. MAGMITT [Concomitant]
     Active Substance: MAGNESIUM OXIDE
     Indication: CONSTIPATION
     Dosage: 750 MILLIGRAM DAILY;
     Route: 048
     Dates: start: 20150620
  5. E-FEN BUCCAL [Suspect]
     Active Substance: FENTANYL CITRATE
     Dosage: 100-200 MICROGRAM DAILY
     Route: 002
     Dates: start: 20150629, end: 20150705
  6. ZOLPIDEM TARTRATE OD [Concomitant]
     Active Substance: ZOLPIDEM TARTRATE
     Dosage: 5 MILLIGRAM DAILY;
     Route: 048
  7. E-FEN BUCCAL [Suspect]
     Active Substance: FENTANYL CITRATE
     Indication: BREAKTHROUGH PAIN
     Dosage: 50-150 MICROGRAM DAILY
     Route: 002
     Dates: start: 20150603, end: 20150605
  8. FENTOS [Concomitant]
     Active Substance: FENTANYL
     Dosage: 2 MILLIGRAM DAILY;
     Route: 062
     Dates: start: 20150629

REACTIONS (2)
  - Small cell lung cancer [Fatal]
  - Constipation [Unknown]

NARRATIVE: CASE EVENT DATE: 20150623
